FAERS Safety Report 8783274 (Version 1)
Quarter: 2012Q4

REPORT INFORMATION
  Report Type: 
  Country: US (occurrence: US)
  Receive Date: 20120913
  Receipt Date: 20120913
  Transmission Date: 20130627
  Serious: Yes (Other)
  Sender: FDA-Public Use
  Company Number: US-JNJFOC-20120902964

PATIENT
  Sex: Female
  Weight: 94.8 kg

DRUGS (7)
  1. TOPIRAMATE [Suspect]
     Indication: MIGRAINE PROPHYLAXIS
     Route: 048
  2. EFFEXOR XR [Concomitant]
     Indication: DEPRESSION
     Route: 048
     Dates: start: 1998
  3. IMITREX [Concomitant]
     Indication: MIGRAINE
     Route: 048
     Dates: start: 1997
  4. MIRAPEX [Concomitant]
     Indication: RESTLESS LEGS SYNDROME
     Route: 048
     Dates: start: 2008
  5. PRAVASTATIN SODIUM [Concomitant]
     Indication: BLOOD CHOLESTEROL
     Route: 048
  6. CYCLOBENZAPRINE [Concomitant]
     Indication: BACK PAIN
     Route: 048
  7. VICODIN [Concomitant]
     Indication: BACK PAIN
     Route: 048

REACTIONS (2)
  - Cataract [Recovered/Resolved]
  - Hypertension [Unknown]
